FAERS Safety Report 18917315 (Version 1)
Quarter: 2021Q1

REPORT INFORMATION
  Report Type: Spontaneous
  Country: US (occurrence: US)
  Receive Date: 20210219
  Receipt Date: 20210219
  Transmission Date: 20210420
  Serious: No
  Sender: FDA-Public Use
  Company Number: US-ASTRAZENECA-2021A014405

PATIENT
  Age: 63 Year
  Sex: Male

DRUGS (5)
  1. FASENRA [Suspect]
     Active Substance: BENRALIZUMAB
     Indication: ASTHMA
     Dosage: EVERY SIX WEEKS
     Route: 058
  2. PULMICORT RESPULES [Suspect]
     Active Substance: BUDESONIDE
     Route: 055
  3. TRELEGY ELLIPTA [Concomitant]
     Active Substance: FLUTICASONE FUROATE\UMECLIDINIUM BROMIDE\VILANTEROL TRIFENATATE
     Dosage: 100, DOCTOR IS CHANGING TO 200 MG
  4. BUDESONIDE. [Concomitant]
     Active Substance: BUDESONIDE
  5. FASENRA [Suspect]
     Active Substance: BENRALIZUMAB
     Indication: ASTHMA
     Route: 058
     Dates: start: 202007

REACTIONS (5)
  - Cough [Unknown]
  - Dyspnoea [Unknown]
  - Ill-defined disorder [Unknown]
  - Wheezing [Unknown]
  - Drug ineffective [Recovering/Resolving]

NARRATIVE: CASE EVENT DATE: 202001
